FAERS Safety Report 22613479 (Version 1)
Quarter: 2023Q2

REPORT INFORMATION
  Report Type: Report from Study
  Country: US (occurrence: US)
  Receive Date: 20230619
  Receipt Date: 20230619
  Transmission Date: 20230722
  Serious: Yes (Other)
  Sender: FDA-Public Use
  Company Number: US-ABBVIE-4754337

PATIENT
  Sex: Female

DRUGS (2)
  1. HUMIRA [Suspect]
     Active Substance: ADALIMUMAB
     Indication: Rheumatoid arthritis
     Route: 058
     Dates: start: 19980502
  2. HUMIRA [Suspect]
     Active Substance: ADALIMUMAB
     Dosage: START DATE : UNKNOWN
     Route: 058

REACTIONS (8)
  - Surgery [Unknown]
  - Pharyngeal ulceration [Unknown]
  - Hypophagia [Unknown]
  - Behcet^s syndrome [Unknown]
  - Bladder disorder [Not Recovered/Not Resolved]
  - Ulcer haemorrhage [Recovered/Resolved]
  - Therapeutic response unexpected [Not Recovered/Not Resolved]
  - Illness [Recovered/Resolved]
